FAERS Safety Report 25652032 (Version 2)
Quarter: 2025Q4

REPORT INFORMATION
  Report Type: Report from Study
  Country: CA (occurrence: CA)
  Receive Date: 20250806
  Receipt Date: 20251121
  Transmission Date: 20260119
  Serious: Yes (Other)
  Sender: APOTEX
  Company Number: CA-PGRTD-E2B_07612791

PATIENT
  Age: 76 Year
  Sex: Female

DRUGS (1)
  1. AMBRISENTAN [Suspect]
     Active Substance: AMBRISENTAN
     Indication: Pulmonary arterial hypertension
     Dosage: 1 EVERY 1 DAYS

REACTIONS (7)
  - Pain [Unknown]
  - Cataract [Unknown]
  - Fibromyalgia [Unknown]
  - Malaise [Unknown]
  - Neck pain [Unknown]
  - Pain in extremity [Unknown]
  - Sinusitis [Unknown]
